FAERS Safety Report 8353885-0 (Version None)
Quarter: 2012Q2

REPORT INFORMATION
  Report Type: 
  Country: None (occurrence: None)
  Receive Date: 20120511
  Receipt Date: 20120209
  Transmission Date: 20120825
  Serious: No
  Sender: FDA-Public Use
  Company Number: US-GLAXOSMITHKLINE-A0965266A

PATIENT
  Age: 38 Year
  Sex: Female

DRUGS (3)
  1. NO CONCURRENT MEDICATION [Concomitant]
  2. TEMOZOLOMIDE [Suspect]
  3. TYKERB [Suspect]
     Indication: BRAIN NEOPLASM
     Dosage: 1250MG PER DAY
     Route: 048
     Dates: start: 20100501

REACTIONS (1)
  - RASH [None]
